FAERS Safety Report 7943131-1 (Version None)
Quarter: 2011Q4

REPORT INFORMATION
  Report Type: 
  Country: None (occurrence: None)
  Receive Date: 20111128
  Receipt Date: 20111115
  Transmission Date: 20120403
  Serious: Yes (Other)
  Sender: FDA-Public Use
  Company Number: PHHY2011JP099081

PATIENT
  Age: 18 Year
  Sex: Male

DRUGS (2)
  1. CORTICOSTEROIDS [Suspect]
     Dosage: 10 MG
     Route: 048
  2. NEORAL [Suspect]
     Indication: SYSTEMIC LUPUS ERYTHEMATOSUS
     Dosage: 50 MG, DAILY
     Route: 048

REACTIONS (1)
  - BODY HEIGHT BELOW NORMAL [None]
